FAERS Safety Report 25777034 (Version 1)
Quarter: 2025Q3

REPORT INFORMATION
  Report Type: Report from Study
  Country: BR (occurrence: BR)
  Receive Date: 20250909
  Receipt Date: 20250909
  Transmission Date: 20251020
  Serious: Yes (Other)
  Sender: ABBVIE
  Company Number: BR-ABBVIE-6444662

PATIENT
  Age: 35 Year
  Sex: Female
  Weight: 120 kg

DRUGS (1)
  1. SKYRIZI [Suspect]
     Active Substance: RISANKIZUMAB-RZAA
     Indication: Psoriasis
     Route: 058
     Dates: start: 20210721, end: 202408

REACTIONS (12)
  - Nephrolithiasis [Recovered/Resolved]
  - Peripheral swelling [Recovered/Resolved]
  - Headache [Recovered/Resolved]
  - Dyspepsia [Recovered/Resolved]
  - Pain [Unknown]
  - Platelet count increased [Unknown]
  - Malaise [Unknown]
  - Skin lesion [Not Recovered/Not Resolved]
  - Erythema [Not Recovered/Not Resolved]
  - Skin discolouration [Not Recovered/Not Resolved]
  - Skin exfoliation [Not Recovered/Not Resolved]
  - Skin wound [Not Recovered/Not Resolved]

NARRATIVE: CASE EVENT DATE: 20240901
